FAERS Safety Report 15630956 (Version 2)
Quarter: 2019Q1

REPORT INFORMATION
  Report Type: Spontaneous
  Country: US (occurrence: US)
  Receive Date: 20181119
  Receipt Date: 20190118
  Transmission Date: 20190417
  Serious: No
  Sender: FDA-Public Use
  Company Number: US-009507513-1811USA003295

PATIENT
  Age: 61 Year
  Sex: Male

DRUGS (1)
  1. INTRON A [Suspect]
     Active Substance: INTERFERON ALFA-2B
     Dosage: UNK
     Dates: start: 20170310

REACTIONS (5)
  - Throat tightness [Unknown]
  - Dyspnoea [Unknown]
  - Tremor [Unknown]
  - Feeling cold [Unknown]
  - Muscle tightness [Unknown]

NARRATIVE: CASE EVENT DATE: 20170531
